FAERS Safety Report 4915163-9 (Version None)
Quarter: 2006Q1

REPORT INFORMATION
  Report Type: 
  Country: None (occurrence: None)
  Receive Date: 20060215
  Receipt Date: 20060215
  Transmission Date: 20060701
  Serious: Yes (Hospitalization, Other)
  Sender: FDA-Public Use
  Company Number: None

PATIENT
  Sex: Female
  Weight: 51.8 kg

DRUGS (1)
  1. TAXOL [Suspect]
     Indication: OVARIAN EPITHELIAL CANCER
     Dosage: 267 MG
     Dates: start: 20060117, end: 20060117

REACTIONS (3)
  - BONE MARROW FAILURE [None]
  - ILEUS PARALYTIC [None]
  - NEUTROPHIL COUNT DECREASED [None]
